FAERS Safety Report 5196943-4 (Version None)
Quarter: 2006Q4

REPORT INFORMATION
  Report Type: 
  Country: None (occurrence: None)
  Receive Date: 20061227
  Receipt Date: 20061218
  Transmission Date: 20070319
  Serious: Yes (Other)
  Sender: FDA-Public Use
  Company Number: 2006SP005085

PATIENT
  Age: 14 Year
  Sex: Female
  Weight: 69.8539 kg

DRUGS (7)
  1. ASMANEX TWISTHALER [Suspect]
     Indication: ASTHMA
     Dosage: 220 MG QD; PO
     Route: 048
     Dates: start: 20061005, end: 20061010
  2. QVAR (PREV.) [Concomitant]
  3. SINGULAIR [Concomitant]
  4. FORADIL [Concomitant]
  5. ALLEGRA [Concomitant]
  6. ALBUTEROL [Concomitant]
  7. PULMICORT [Concomitant]

REACTIONS (5)
  - CHEST DISCOMFORT [None]
  - DYSPNOEA [None]
  - PARAESTHESIA [None]
  - SWOLLEN TONGUE [None]
  - THROAT TIGHTNESS [None]
